FAERS Safety Report 8489357-2 (Version None)
Quarter: 2012Q3

REPORT INFORMATION
  Report Type: 
  Country: None (occurrence: None)
  Receive Date: 20120705
  Receipt Date: 20120625
  Transmission Date: 20120928
  Serious: Yes (Hospitalization, Other)
  Sender: FDA-Public Use
  Company Number: FR-ASTRAZENECA-2012SE43333

PATIENT
  Age: 23731 Day
  Sex: Female

DRUGS (12)
  1. ATACAND [Suspect]
     Route: 048
     Dates: end: 20120311
  2. MEMANTINE HYDROCHLORIDE [Concomitant]
     Indication: DEMENTIA ALZHEIMER'S TYPE
     Route: 048
  3. LEXOMIL [Concomitant]
     Route: 048
     Dates: start: 20120307, end: 20120311
  4. DOMPERIDONE [Concomitant]
     Route: 048
     Dates: end: 20120307
  5. NEXIUM [Suspect]
     Route: 048
     Dates: start: 20120307, end: 20120311
  6. KARDEGIC [Concomitant]
     Route: 048
     Dates: end: 20120311
  7. CRESTOR [Suspect]
     Route: 048
     Dates: end: 20120311
  8. ARICEPT [Concomitant]
     Indication: DEMENTIA ALZHEIMER'S TYPE
     Route: 048
     Dates: end: 20120311
  9. ALUMINUM HYDROXIDE AND MAGNESIUM TRISILICATE [Concomitant]
     Dosage: 2 TO 3 DF PER DAY
     Route: 048
     Dates: start: 20120307, end: 20120310
  10. KERLONE [Concomitant]
     Route: 048
     Dates: end: 20120311
  11. LERCANIDIPINE [Concomitant]
     Route: 048
     Dates: end: 20120310
  12. LEVOTHYROXINE SODIUM [Concomitant]
     Route: 048

REACTIONS (5)
  - HYPOKALAEMIA [None]
  - CONVULSION [None]
  - HYPONATRAEMIA [None]
  - PNEUMONIA [None]
  - PARTIAL SEIZURES [None]
